FAERS Safety Report 23807714 (Version 1)
Quarter: 2024Q2

REPORT INFORMATION
  Report Type: Spontaneous
  Country: US (occurrence: US)
  Receive Date: 20240502
  Receipt Date: 20240502
  Transmission Date: 20240716
  Serious: Yes (Other)
  Sender: FDA-Public Use
  Company Number: US-ABBVIE-5739263

PATIENT
  Sex: Male

DRUGS (1)
  1. PREDNISOLONE ACETATE [Suspect]
     Active Substance: PREDNISOLONE ACETATE
     Indication: Eye inflammation
     Dosage: FORM STRENGTH 1 PERCENT
     Route: 047
     Dates: start: 20240426

REACTIONS (3)
  - Blindness [Unknown]
  - Inappropriate schedule of product administration [Unknown]
  - Product storage error [Unknown]

NARRATIVE: CASE EVENT DATE: 20240401
